FAERS Safety Report 7212370-X (Version None)
Quarter: 2011Q1

REPORT INFORMATION
  Report Type: 
  Country: None (occurrence: None)
  Receive Date: 20110106
  Receipt Date: 20110104
  Transmission Date: 20110831
  Serious: Yes (Hospitalization)
  Sender: FDA-Public Use
  Company Number: FR-BRISTOL-MYERS SQUIBB COMPANY-15315427

PATIENT
  Age: 63 Year
  Sex: Male

DRUGS (12)
  1. AMIODARONE [Suspect]
     Dosage: TAKEN AS CONMED ALSO JUN10.
     Dates: end: 20100301
  2. APROVEL [Suspect]
     Dates: end: 20100101
  3. CALCIUM [Concomitant]
  4. MOPRAL [Concomitant]
  5. SINTROM [Concomitant]
  6. ACTONEL [Concomitant]
  7. RAMIPRIL [Concomitant]
  8. LASIX [Concomitant]
  9. BISOPROLOL [Concomitant]
     Dates: start: 20100601
  10. PREDNISONE [Concomitant]
  11. KARDEGIC [Suspect]
     Dates: end: 20100101
  12. LEVOTHYROX [Concomitant]

REACTIONS (5)
  - DYSPNOEA [None]
  - INTERSTITIAL LUNG DISEASE [None]
  - CHOLESTASIS [None]
  - CELL DEATH [None]
  - CARDIAC FAILURE [None]
